FAERS Safety Report 9803871 (Version 1)
Quarter: 2014Q1

REPORT INFORMATION
  Report Type: Spontaneous
  Country: US (occurrence: US)
  Receive Date: 20140108
  Receipt Date: 20140108
  Transmission Date: 20141002
  Serious: Yes (Death, Other)
  Sender: FDA-Public Use
  Company Number: US-UCBSA-108259

PATIENT
  Age: 22 Year
  Sex: Male

DRUGS (5)
  1. ACETAMINOPHEN/ HYDROCODONE [Suspect]
  2. ACETAMINOPHEN/ OXYCODONE [Suspect]
  3. METHADONE [Suspect]
  4. SERTRALINE [Suspect]
  5. DIAZEPAM [Suspect]

REACTIONS (2)
  - Cardio-respiratory arrest [Fatal]
  - Drug abuse [Fatal]
